FAERS Safety Report 9759402 (Version 1)
Quarter: 2013Q4

REPORT INFORMATION
  Report Type: Spontaneous
  Country: US (occurrence: None)
  Receive Date: 20131216
  Receipt Date: 20131216
  Transmission Date: 20140711
  Serious: Yes (Other)
  Sender: FDA-Public Use
  Company Number: 163-21880-12103732(0)

PATIENT
  Age: 62 Year
  Sex: Female
  Weight: 129 kg

DRUGS (1)
  1. REVLIMID (LENALIDOMIDE) (15 MILLIGRAM, CAPSULES) [Suspect]
     Indication: PLASMA CELL MYELOMA
     Dosage: 15 MG, 14 IN 21 D, PO?15 MG, 14 IN 21 D, PO?

REACTIONS (3)
  - Full blood count decreased [None]
  - Platelet count decreased [None]
  - Cough [None]
